FAERS Safety Report 16106565 (Version 1)
Quarter: 2019Q1

REPORT INFORMATION
  Report Type: Spontaneous
  Country: US (occurrence: US)
  Receive Date: 20190322
  Receipt Date: 20190322
  Transmission Date: 20190418
  Serious: Yes (Disabling, Other)
  Sender: FDA-Public Use
  Company Number: US-REGENERON PHARMACEUTICALS, INC.-2019-22613

PATIENT

DRUGS (4)
  1. EYLEA [Suspect]
     Active Substance: AFLIBERCEPT
     Dosage: Q4W, THEN EVERY 5 WEEKS, LEFT EYE
     Route: 031
     Dates: start: 20181207, end: 20181207
  2. EYLEA [Suspect]
     Active Substance: AFLIBERCEPT
     Dosage: Q5W, RIGHT EYE
     Route: 031
     Dates: start: 20190125, end: 20190125
  3. EYLEA [Suspect]
     Active Substance: AFLIBERCEPT
     Dosage: Q5W, LEFT EYE
     Route: 031
     Dates: start: 20190226, end: 20190226
  4. EYLEA [Suspect]
     Active Substance: AFLIBERCEPT
     Indication: MACULAR DEGENERATION
     Dosage: Q4W, BOTH EYES
     Route: 031
     Dates: start: 2018

REACTIONS (5)
  - Eye pain [Recovering/Resolving]
  - Vitreous floaters [Unknown]
  - Depressed mood [Unknown]
  - Blindness [Unknown]
  - Vision blurred [Unknown]
